FAERS Safety Report 8473321-3 (Version None)
Quarter: 2012Q2

REPORT INFORMATION
  Report Type: 
  Country: None (occurrence: None)
  Receive Date: 20120628
  Receipt Date: 20120618
  Transmission Date: 20120825
  Serious: Yes (Death)
  Sender: FDA-Public Use
  Company Number: JP-GE HEALTHCARE MEDICAL DIAGNOSTICS-MSTR-NO-1206S-0040

PATIENT
  Age: 79 Year
  Sex: Male

DRUGS (1)
  1. METASTRON [Suspect]
     Indication: METASTATIC PAIN
     Route: 042
     Dates: start: 20120516, end: 20120516

REACTIONS (2)
  - INFECTION [None]
  - SEPSIS [None]
